FAERS Safety Report 7485037-0 (Version None)
Quarter: 2011Q2

REPORT INFORMATION
  Report Type: 
  Country: None (occurrence: None)
  Receive Date: 20110517
  Receipt Date: 20101105
  Transmission Date: 20111010
  Serious: No
  Sender: FDA-Public Use
  Company Number: US-BAYER-201023606BCC

PATIENT
  Sex: Female

DRUGS (2)
  1. MOBIC [Concomitant]
  2. ALEVE [Suspect]
     Indication: ARTHRALGIA
     Dosage: UNK
     Dates: start: 20101001

REACTIONS (1)
  - URTICARIA [None]
